FAERS Safety Report 22639638 (Version 1)
Quarter: 2023Q2

REPORT INFORMATION
  Report Type: Spontaneous
  Country: US (occurrence: US)
  Receive Date: 20230626
  Receipt Date: 20230626
  Transmission Date: 20230722
  Serious: No
  Sender: FDA-Public Use
  Company Number: US-BRISTOL-MYERS SQUIBB COMPANY-2023-088864

PATIENT
  Age: 79 Year
  Sex: Female

DRUGS (2)
  1. REVLIMID [Suspect]
     Active Substance: LENALIDOMIDE
     Indication: Plasma cell myeloma
     Route: 048
     Dates: start: 202303
  2. REVLIMID [Suspect]
     Active Substance: LENALIDOMIDE
     Indication: Carcinoid tumour

REACTIONS (6)
  - Blood pressure increased [Unknown]
  - Anxiety [Unknown]
  - Dizziness [Unknown]
  - Asthenia [Unknown]
  - Pain in extremity [Unknown]
  - Off label use [Unknown]
